FAERS Safety Report 5471014-8 (Version None)
Quarter: 2007Q3

REPORT INFORMATION
  Report Type: 
  Country: None (occurrence: None)
  Receive Date: 20070928
  Receipt Date: 20070921
  Transmission Date: 20080115
  Serious: Yes (Life-Threatening, Hospitalization, Disabling)
  Sender: FDA-Public Use
  Company Number: B0483222A

PATIENT
  Age: 79 Year
  Sex: Male
  Weight: 38 kg

DRUGS (1)
  1. ARIXTRA [Suspect]
     Indication: THROMBOSIS PROPHYLAXIS
     Dosage: 2.5MG PER DAY
     Route: 058
     Dates: start: 20070731, end: 20070803

REACTIONS (3)
  - MALAISE [None]
  - POST PROCEDURAL HAEMORRHAGE [None]
  - TRAUMATIC HAEMATOMA [None]
